FAERS Safety Report 10039271 (Version 1)
Quarter: 2014Q1

REPORT INFORMATION
  Report Type: Spontaneous
  Country: FR (occurrence: FR)
  Receive Date: 20140326
  Receipt Date: 20140326
  Transmission Date: 20141002
  Serious: Yes (Other)
  Sender: FDA-Public Use
  Company Number: FR-PFIZER INC-2014081390

PATIENT
  Age: 3 Year
  Sex: Male

DRUGS (1)
  1. ADVIL ENFANTS ET NOURRISSONS [Suspect]
     Indication: PYREXIA
     Dosage: 1 DF, SINGLE
     Route: 048
     Dates: start: 20140220, end: 20140220

REACTIONS (3)
  - Incorrect product storage [Recovered/Resolved]
  - Medication error [Recovered/Resolved]
  - Vomiting [Recovered/Resolved]
